FAERS Safety Report 19651600 (Version 5)
Quarter: 2021Q3

REPORT INFORMATION
  Report Type: Report from Study
  Country: IL (occurrence: IL)
  Receive Date: 20210803
  Receipt Date: 20210816
  Transmission Date: 20211014
  Serious: Yes (Hospitalization)
  Sender: FDA-Public Use
  Company Number: IL-EISAI MEDICAL RESEARCH-EC-2021-097042

PATIENT
  Age: 68 Year
  Sex: Male
  Weight: 69.8 kg

DRUGS (17)
  1. CANNABIS SATIVA OIL [Concomitant]
     Active Substance: CANNABIS SATIVA SUBSP. INDICA TOP
     Dates: start: 202104
  2. TRITACE [Concomitant]
     Active Substance: RAMIPRIL
     Dates: start: 20210707
  3. PEMBROLIZUMAB. [Suspect]
     Active Substance: PEMBROLIZUMAB
     Indication: PANCREATIC CARCINOMA
     Route: 041
     Dates: start: 20210708, end: 20210708
  4. GLUCOMIN [Concomitant]
     Active Substance: METFORMIN HYDROCHLORIDE
     Dates: start: 200501
  5. NORMALAX [MACROGOL 3350] [Concomitant]
     Dates: start: 20210609
  6. PRAMIN [Concomitant]
     Dates: start: 202101
  7. PERCOCET [Concomitant]
     Active Substance: ACETAMINOPHEN\OXYCODONE HYDROCHLORIDE
     Dates: start: 20210609
  8. LENVATINIB [Suspect]
     Active Substance: LENVATINIB
     Route: 048
     Dates: start: 20210726, end: 20210726
  9. LENVATINIB [Suspect]
     Active Substance: LENVATINIB
     Route: 048
     Dates: start: 20210801
  10. FORXIGA [Concomitant]
     Active Substance: DAPAGLIFLOZIN
     Dates: start: 201101
  11. LENVATINIB [Suspect]
     Active Substance: LENVATINIB
     Indication: PANCREATIC CARCINOMA
     Route: 048
     Dates: start: 20210708, end: 20210725
  12. PEMBROLIZUMAB. [Suspect]
     Active Substance: PEMBROLIZUMAB
     Route: 041
     Dates: start: 20210726, end: 20210726
  13. LYRICA [Concomitant]
     Active Substance: PREGABALIN
     Dates: start: 20210708
  14. SIMVASTATIN. [Concomitant]
     Active Substance: SIMVASTATIN
     Dates: start: 200501
  15. GRANUFLEX [Concomitant]
     Dates: start: 202106
  16. OPTALGIN [Concomitant]
     Active Substance: METAMIZOLE
     Dates: start: 20210704
  17. FENTANYL TRANSDERMAL SYSTEM [Concomitant]
     Active Substance: FENTANYL
     Dates: start: 20210709

REACTIONS (1)
  - Bradycardia [Recovered/Resolved]

NARRATIVE: CASE EVENT DATE: 20210726
